FAERS Safety Report 10240236 (Version 1)
Quarter: 2014Q2

REPORT INFORMATION
  Report Type: Spontaneous
  Country: US (occurrence: US)
  Receive Date: 20140617
  Receipt Date: 20140617
  Transmission Date: 20141212
  Serious: Yes (Other)
  Sender: FDA-Public Use
  Company Number: GXBR2014US001426

PATIENT
  Age: 64 Year
  Sex: Female

DRUGS (4)
  1. METHIMAZOLE TABLETS, USP [Suspect]
     Indication: BASEDOW^S DISEASE
     Dosage: 10 MG, BID
     Dates: end: 201401
  2. METHIMAZOLE TABLETS, USP [Suspect]
     Dosage: 10 MG, BID
     Dates: start: 201402
  3. VITAMIN D3 [Suspect]
     Indication: SUPPLEMENTATION THERAPY
     Dosage: 50000 IU, QD
     Route: 048
     Dates: start: 2004, end: 201404
  4. PROPRANOLOL [Concomitant]
     Indication: BASEDOW^S DISEASE
     Dosage: 5 MG, QD

REACTIONS (11)
  - Thyrotoxic crisis [Unknown]
  - Lupus-like syndrome [Recovering/Resolving]
  - Hyperthyroidism [Recovering/Resolving]
  - Chest discomfort [Recovering/Resolving]
  - Nausea [Recovering/Resolving]
  - Pyrexia [Recovering/Resolving]
  - Palpitations [Recovering/Resolving]
  - Diarrhoea [Recovering/Resolving]
  - Discomfort [Recovering/Resolving]
  - Tachycardia [Recovering/Resolving]
  - Transaminases increased [None]
